FAERS Safety Report 7793205-3 (Version None)
Quarter: 2011Q4

REPORT INFORMATION
  Report Type: 
  Country: None (occurrence: None)
  Receive Date: 20111003
  Receipt Date: 20110921
  Transmission Date: 20120403
  Serious: Yes (Hospitalization)
  Sender: FDA-Public Use
  Company Number: US-ELI_LILLY_AND_COMPANY-US201109006996

PATIENT
  Sex: Male

DRUGS (5)
  1. HUMALOG [Suspect]
     Dosage: UNK UNK, PRN
     Dates: start: 19900101
  2. OXYCONTIN [Concomitant]
  3. LANTUS [Concomitant]
     Dosage: 50 U, QD
  4. GABAPENTIN [Concomitant]
     Dosage: UNK
  5. HUMALOG [Suspect]
     Indication: TYPE 2 DIABETES MELLITUS
     Dosage: UNK UNK, PRN
     Dates: start: 19900101

REACTIONS (9)
  - HERPES ZOSTER [None]
  - GALLBLADDER DISORDER [None]
  - PAIN IN EXTREMITY [None]
  - HYPOACUSIS [None]
  - GAIT DISTURBANCE [None]
  - SKIN DISORDER [None]
  - FALL [None]
  - PAIN [None]
  - NEURALGIA [None]
